FAERS Safety Report 14155622 (Version 1)
Quarter: 2017Q4

REPORT INFORMATION
  Report Type: Spontaneous
  Country: US (occurrence: US)
  Receive Date: 20171103
  Receipt Date: 20171103
  Transmission Date: 20180321
  Serious: No
  Sender: FDA-Public Use
  Company Number: US-PFIZER INC-2017471534

PATIENT
  Age: 9 Year
  Sex: Female

DRUGS (3)
  1. ALBUTEROL. [Concomitant]
     Active Substance: ALBUTEROL
     Indication: ASTHMA
     Dosage: 90 UG, 2 PUFFS AS NEEDED EVERY 4 HOURS
  2. CETIRIZINE [Concomitant]
     Active Substance: CETIRIZINE HYDROCHLORIDE
     Indication: HYPERSENSITIVITY
     Dosage: 2.5 MG, DAILY
     Route: 048
  3. GENOTROPIN [Suspect]
     Active Substance: SOMATROPIN
     Indication: GROWTH HORMONE DEFICIENCY
     Dosage: 0.9 MG INJECTION, 1X/DAY (SIX DAYS A WEEK)
     Dates: start: 201611, end: 201702

REACTIONS (1)
  - Eczema [Unknown]

NARRATIVE: CASE EVENT DATE: 2017
